FAERS Safety Report 23738255 (Version 1)
Quarter: 2024Q2

REPORT INFORMATION
  Report Type: Spontaneous
  Country: FR (occurrence: FR)
  Receive Date: 20240412
  Receipt Date: 20240412
  Transmission Date: 20240716
  Serious: Yes (Other)
  Sender: FDA-Public Use
  Company Number: None

PATIENT
  Age: 23 Year
  Sex: Male

DRUGS (1)
  1. ALPRAZOLAM [Suspect]
     Active Substance: ALPRAZOLAM
     Indication: Product used for unknown indication
     Dosage: 0.25MG 3 X/D
     Route: 048
     Dates: start: 2018

REACTIONS (2)
  - Drug use disorder [Not Recovered/Not Resolved]
  - Product use in unapproved indication [Not Recovered/Not Resolved]
